FAERS Safety Report 9120635 (Version 1)
Quarter: 2013Q1

REPORT INFORMATION
  Report Type: Spontaneous
  Country: LB (occurrence: LB)
  Receive Date: 20130226
  Receipt Date: 20130226
  Transmission Date: 20140127
  Serious: Yes (Death, Hospitalization)
  Sender: FDA-Public Use
  Company Number: LB-ROCHE-1192183

PATIENT
  Age: 38 Year
  Sex: Male
  Weight: 70 kg

DRUGS (10)
  1. XOLAIR [Suspect]
     Indication: ASTHMA
     Dosage: LAST DOSE ON 05/FEB/2012
     Route: 058
     Dates: start: 20121101
  2. XOLAIR [Suspect]
     Route: 058
     Dates: start: 201212
  3. XOLAIR [Suspect]
     Route: 058
     Dates: start: 201301
  4. LIPANTHYL [Concomitant]
  5. NIASPAN [Concomitant]
  6. SINGULAIR [Concomitant]
  7. SERETIDE [Concomitant]
     Route: 065
     Dates: start: 201210
  8. FLIXONASE [Concomitant]
     Route: 065
     Dates: start: 201210
  9. AERIUS [Concomitant]
  10. ZYRTEC [Concomitant]

REACTIONS (2)
  - Cardio-respiratory arrest [Fatal]
  - Bronchospasm [Unknown]
